FAERS Safety Report 16806625 (Version 1)
Quarter: 2019Q3

REPORT INFORMATION
  Report Type: Spontaneous
  Country: US (occurrence: US)
  Receive Date: 20190913
  Receipt Date: 20190913
  Transmission Date: 20191005
  Serious: No
  Sender: FDA-Public Use
  Company Number: US-SA-2019SA255478

PATIENT
  Age: 67 Year
  Sex: Female

DRUGS (1)
  1. PRALUENT [Suspect]
     Active Substance: ALIROCUMAB
     Dosage: 75 MG, QOW
     Route: 058
     Dates: start: 201807

REACTIONS (6)
  - Product dose omission [Unknown]
  - Toothache [Unknown]
  - Musculoskeletal pain [Unknown]
  - Condition aggravated [Unknown]
  - Varicose vein [Unknown]
  - Arthralgia [Unknown]
